FAERS Safety Report 5516990-X (Version None)
Quarter: 2007Q4

REPORT INFORMATION
  Report Type: 
  Country: None (occurrence: None)
  Receive Date: 20071114
  Receipt Date: 20070626
  Transmission Date: 20080405
  Serious: No
  Sender: FDA-Public Use
  Company Number: A0659864A

PATIENT
  Age: 69 Year
  Sex: Female

DRUGS (1)
  1. COMMIT [Suspect]
     Dates: start: 20070615

REACTIONS (5)
  - APHTHOUS STOMATITIS [None]
  - ORAL FUNGAL INFECTION [None]
  - ORAL PAIN [None]
  - PHARMACEUTICAL PRODUCT COMPLAINT [None]
  - STOMATITIS [None]
